FAERS Safety Report 20949890 (Version 1)
Quarter: 2022Q2

REPORT INFORMATION
  Report Type: Spontaneous
  Country: US (occurrence: None)
  Receive Date: 20220613
  Receipt Date: 20220613
  Transmission Date: 20220720
  Serious: Yes (Hospitalization, Other)
  Sender: FDA-Public Use
  Company Number: US-ROCHE-3111526

PATIENT
  Age: 75 Year
  Sex: Female
  Weight: 49.668 kg

DRUGS (1)
  1. TECENTRIQ [Suspect]
     Active Substance: ATEZOLIZUMAB
     Indication: Non-small cell lung cancer
     Dosage: UNKNOWN
     Route: 042
     Dates: start: 20220523

REACTIONS (12)
  - Heart rate increased [Recovered/Resolved]
  - Pain [Recovered/Resolved]
  - Delirium [Recovered/Resolved]
  - Pollakiuria [Recovered/Resolved]
  - Feeling cold [Recovered/Resolved]
  - Pyrexia [Recovered/Resolved]
  - Fatigue [Recovering/Resolving]
  - Tinnitus [Recovering/Resolving]
  - Confusional state [Recovering/Resolving]
  - Nausea [Recovered/Resolved]
  - Influenza [Recovered/Resolved]
  - Dizziness [Unknown]

NARRATIVE: CASE EVENT DATE: 20220523
